FAERS Safety Report 10774953 (Version 1)
Quarter: 2015Q1

REPORT INFORMATION
  Report Type: Spontaneous
  Country: US (occurrence: US)
  Receive Date: 20150209
  Receipt Date: 20150209
  Transmission Date: 20150721
  Serious: No
  Sender: FDA-Public Use
  Company Number: US-ASTRAZENECA-2015SE10127

PATIENT
  Age: 418 Month
  Sex: Male
  Weight: 68 kg

DRUGS (4)
  1. XIGDUO XR [Suspect]
     Active Substance: DAPAGLIFLOZIN PROPANEDIOL\METFORMIN HYDROCHLORIDE
     Indication: DIABETES MELLITUS
     Dosage: 5/1000 MG BID
     Route: 048
     Dates: start: 201412, end: 201501
  2. ONSEI [Concomitant]
     Indication: BLOOD GLUCOSE ABNORMAL
     Dosage: EVERY DAY
     Dates: start: 201412
  3. XIGDUO XR [Suspect]
     Active Substance: DAPAGLIFLOZIN PROPANEDIOL\METFORMIN HYDROCHLORIDE
     Indication: DIABETES MELLITUS
     Dosage: 10/1000 MG DAILY
     Route: 048
     Dates: start: 201501, end: 201501
  4. XIGDUO XR [Suspect]
     Active Substance: DAPAGLIFLOZIN PROPANEDIOL\METFORMIN HYDROCHLORIDE
     Indication: DIABETES MELLITUS
     Dosage: 5/1000 MG BID
     Route: 048
     Dates: start: 201501

REACTIONS (1)
  - Abdominal discomfort [Recovered/Resolved]

NARRATIVE: CASE EVENT DATE: 201412
